FAERS Safety Report 26154556 (Version 1)
Quarter: 2025Q4

REPORT INFORMATION
  Report Type: Spontaneous
  Country: CA (occurrence: CA)
  Receive Date: 20251215
  Receipt Date: 20251215
  Transmission Date: 20260117
  Serious: Yes (Death, Hospitalization)
  Sender: AILEX PHARMACEUTICALS LLC
  Company Number: CA-AP-2025-100199-LIT-122

PATIENT
  Age: 61 Year
  Sex: Female

DRUGS (2)
  1. BISMUTH SUBSALICYLATE\METRONIDAZOLE\TETRACYCLINE HYDROCHLORIDE [Suspect]
     Active Substance: BISMUTH SUBSALICYLATE\METRONIDAZOLE\TETRACYCLINE HYDROCHLORIDE
     Indication: Helicobacter infection
  2. OMEPRAZOLE [Suspect]
     Active Substance: OMEPRAZOLE
     Indication: Helicobacter infection

REACTIONS (6)
  - Cholestatic liver injury [Fatal]
  - Hypercholesterolaemia [Fatal]
  - Nephropathy [Fatal]
  - Central vision loss [Fatal]
  - Secondary hypertension [Fatal]
  - Multiple organ dysfunction syndrome [Fatal]
